FAERS Safety Report 4869640-X (Version None)
Quarter: 2005Q4

REPORT INFORMATION
  Report Type: 
  Country: None (occurrence: None)
  Receive Date: 20051227
  Receipt Date: 20051221
  Transmission Date: 20060501
  Serious: Yes (Hospitalization, Other)
  Sender: FDA-Public Use
  Company Number: HQWYE692523NOV05

PATIENT
  Age: 7 Year
  Sex: Female

DRUGS (8)
  1. ADVIL [Suspect]
     Indication: HEADACHE
     Dosage: ^FEW INTAKE^, ORAL
     Route: 048
     Dates: start: 20050901, end: 20050901
  2. ADVIL [Suspect]
     Indication: PYREXIA
     Dosage: ^FEW INTAKE^, ORAL
     Route: 048
     Dates: start: 20050901, end: 20050901
  3. ADVIL [Suspect]
     Indication: RHINITIS
     Dosage: ^FEW INTAKE^, ORAL
     Route: 048
     Dates: start: 20050901, end: 20050901
  4. ADVIL [Suspect]
     Indication: SINUSITIS
     Dosage: ^FEW INTAKE^, ORAL
     Route: 048
     Dates: start: 20050901, end: 20050901
  5. EFFERALGAN (PARACETAMOL) [Concomitant]
  6. PULMICORT [Concomitant]
  7. BRICANYL [Concomitant]
  8. UNSPECIFIED NASAL PREPARATION [Concomitant]

REACTIONS (8)
  - DRUG INEFFECTIVE [None]
  - ERYTHEMA [None]
  - ERYTHEMA OF EYELID [None]
  - EYE PAIN [None]
  - EYE PRURITUS [None]
  - LACRIMATION INCREASED [None]
  - OCULAR HYPERAEMIA [None]
  - PERIORBITAL OEDEMA [None]
